FAERS Safety Report 5662548-1 (Version None)
Quarter: 2008Q1

REPORT INFORMATION
  Report Type: 
  Country: None (occurrence: None)
  Receive Date: 20080213
  Receipt Date: 20071126
  Transmission Date: 20080703
  Serious: Yes (Other)
  Sender: FDA-Public Use
  Company Number: 200717172US

PATIENT
  Age: 72 Year
  Sex: Female

DRUGS (7)
  1. APIDRA [Suspect]
     Indication: TYPE 2 DIABETES MELLITUS
     Dosage: 4 U BID INJ
     Dates: start: 20070601
  2. OPTICLICK PEN [Suspect]
     Dates: start: 20070601
  3. SYNTHROID [Concomitant]
  4. POTASSIUM CHLORIDE (KLOR-CON) [Concomitant]
  5. ^EQUINOPRIL^ [Concomitant]
  6. LANTUS [Suspect]
     Dates: start: 20060101
  7. OPTICLICK [Suspect]
     Dates: start: 20060101

REACTIONS (3)
  - BLOOD GLUCOSE INCREASED [None]
  - HYPOGLYCAEMIA [None]
  - WRONG DRUG ADMINISTERED [None]
